FAERS Safety Report 17569468 (Version 1)
Quarter: 2020Q1

REPORT INFORMATION
  Report Type: Report from Study
  Country: None (occurrence: FR)
  Receive Date: 20200323
  Receipt Date: 20200323
  Transmission Date: 20200409
  Serious: Yes (Hospitalization)
  Sender: FDA-Public Use
  Company Number: FR-ABBVIE-20K-056-3328904-00

PATIENT
  Sex: Female

DRUGS (1)
  1. DUODOPA [Suspect]
     Active Substance: CARBIDOPA\LEVODOPA
     Indication: PARKINSON^S DISEASE
     Route: 050
     Dates: start: 202002

REACTIONS (10)
  - Fatigue [Unknown]
  - Confusional state [Unknown]
  - Hyperhidrosis [Unknown]
  - Balance disorder [Unknown]
  - Hallucination [Unknown]
  - Hypokinesia [Unknown]
  - Incoherent [Unknown]
  - Incorrect route of product administration [Unknown]
  - Mobility decreased [Unknown]
  - Device breakage [Unknown]

NARRATIVE: CASE EVENT DATE: 2020
